FAERS Safety Report 5051690-4 (Version None)
Quarter: 2006Q3

REPORT INFORMATION
  Report Type: 
  Country: None (occurrence: None)
  Receive Date: 20060714
  Receipt Date: 20060713
  Transmission Date: 20061208
  Serious: Yes (Other)
  Sender: FDA-Public Use
  Company Number: PR-BRISTOL-MYERS SQUIBB COMPANY-13441472

PATIENT
  Age: 82 Year
  Sex: Male

DRUGS (5)
  1. KENALOG-40 [Suspect]
     Route: 031
     Dates: start: 20060530
  2. VIGAMOX [Concomitant]
     Dosage: DOSE VALUE: 10 DEGREE
  3. COZAAR [Concomitant]
  4. ACTOS [Concomitant]
  5. COSOPT [Concomitant]

REACTIONS (4)
  - HYPOPYON [None]
  - PAIN [None]
  - VISUAL ACUITY REDUCED [None]
  - VITRITIS [None]
